FAERS Safety Report 21310216 (Version 3)
Quarter: 2022Q3

REPORT INFORMATION
  Report Type: Spontaneous
  Country: EG (occurrence: EG)
  Receive Date: 20220909
  Receipt Date: 20220923
  Transmission Date: 20221027
  Serious: Yes (Life-Threatening, Hospitalization, Other)
  Sender: FDA-Public Use
  Company Number: EG-NOVOPROD-954251

PATIENT
  Age: 47 Year
  Sex: Male
  Weight: 83 kg

DRUGS (2)
  1. INSULIN HUMAN [Suspect]
     Active Substance: INSULIN HUMAN
     Indication: Type 2 diabetes mellitus
     Dosage: 60 IU, QD (40U ON THE MORNING AND 20U AT THE NIGHT)
     Route: 058
     Dates: start: 2018, end: 20220730
  2. VILDAGLUSE PLUS [Concomitant]
     Indication: Type 2 diabetes mellitus
     Dosage: UNK

REACTIONS (3)
  - Coronary arterial stent insertion [Recovered/Resolved]
  - Thrombosis [Recovered/Resolved]
  - Hyperglycaemia [Recovered/Resolved]

NARRATIVE: CASE EVENT DATE: 20220729
